FAERS Safety Report 6238867-7 (Version None)
Quarter: 2009Q2

REPORT INFORMATION
  Report Type: 
  Country: None (occurrence: None)
  Receive Date: 20090617
  Receipt Date: 20090617
  Transmission Date: 20091009
  Serious: No
  Sender: FDA-Public Use
  Company Number: None

PATIENT
  Age: 59 Year
  Sex: Female
  Weight: 73.9363 kg

DRUGS (2)
  1. AVELOX [Suspect]
     Indication: INFLUENZA
     Dosage: 400MG ONCE A DAY PO
     Route: 048
     Dates: start: 20090601, end: 20090609
  2. AVELOX [Suspect]
     Indication: SINUSITIS
     Dosage: 400MG ONCE A DAY PO
     Route: 048
     Dates: start: 20090601, end: 20090609

REACTIONS (2)
  - BLISTER [None]
  - NEURALGIA [None]
